FAERS Safety Report 9164821 (Version 3)
Quarter: 2013Q2

REPORT INFORMATION
  Report Type: Spontaneous
  Country: US (occurrence: US)
  Receive Date: 20130315
  Receipt Date: 20130417
  Transmission Date: 20140414
  Serious: Yes (Other)
  Sender: FDA-Public Use
  Company Number: US-JNJFOC-20130302557

PATIENT
  Age: 20 Year
  Sex: Male

DRUGS (4)
  1. STELARA [Suspect]
     Indication: PSORIASIS
     Route: 058
     Dates: start: 201211
  2. STELARA [Suspect]
     Indication: PSORIASIS
     Dosage: INJECTED INTO THIGH
     Route: 058
     Dates: start: 201207
  3. STELARA [Suspect]
     Indication: PSORIASIS
     Route: 058
     Dates: start: 201208
  4. PRILOSEC [Suspect]
     Indication: ABDOMINAL DISCOMFORT
     Route: 048
     Dates: start: 201302, end: 201302

REACTIONS (6)
  - Swollen tongue [Not Recovered/Not Resolved]
  - Local swelling [Recovered/Resolved]
  - Musculoskeletal stiffness [Not Recovered/Not Resolved]
  - Urticaria [Recovered/Resolved]
  - Swelling face [Recovered/Resolved]
  - Pruritus [Not Recovered/Not Resolved]
